FAERS Safety Report 8013327-1 (Version None)
Quarter: 2011Q4

REPORT INFORMATION
  Report Type: 
  Country: None (occurrence: None)
  Receive Date: 20111229
  Receipt Date: 20111222
  Transmission Date: 20120403
  Serious: Yes (Death)
  Sender: FDA-Public Use
  Company Number: PHEH2011US012382

PATIENT
  Sex: Female

DRUGS (12)
  1. ALOXI [Concomitant]
     Dosage: UNK UKN, UNK
  2. MAGNESIUM [Concomitant]
     Dosage: UNK UKN, UNK
  3. TAXOTERE [Concomitant]
  4. COMPAZINE [Concomitant]
     Dosage: UNK UKN, UNK
  5. DEXAMETHASONE [Concomitant]
     Dosage: UNK UKN, UNK
  6. ZOMETA [Suspect]
     Dosage: 4 MG, EVERY 21 DAYS
  7. DILTIAZEM HCL [Concomitant]
     Dosage: UNK UKN, UNK
  8. NEULASTA [Concomitant]
     Dosage: UNK UKN, UNK
  9. DABIGATRAN [Concomitant]
  10. KLOR-CON [Concomitant]
     Dosage: UNK UKN, UNK
  11. LORTAB [Concomitant]
     Dosage: UNK UKN, UNK
  12. ALBUTEROL [Concomitant]
     Dosage: UNK UKN, UNK

REACTIONS (1)
  - DEATH [None]
